FAERS Safety Report 5578879-X (Version None)
Quarter: 2008Q1

REPORT INFORMATION
  Report Type: 
  Country: None (occurrence: None)
  Receive Date: 20080102
  Receipt Date: 20071220
  Transmission Date: 20080703
  Serious: Yes (Hospitalization)
  Sender: FDA-Public Use
  Company Number: JP-NOVOPROD-270298

PATIENT
  Age: 33 Year
  Sex: Female

DRUGS (5)
  1. NOVOLIN N [Suspect]
     Indication: DIABETES MELLITUS
     Route: 058
  2. NOVOLIN R [Suspect]
     Indication: DIABETES MELLITUS
     Route: 058
  3. IRON [Concomitant]
  4. ERYTHROPOIETIN [Concomitant]
  5. GLYBURIDE [Suspect]
     Dosage: 3.75 MG, UNK

REACTIONS (5)
  - ANAEMIA [None]
  - HYPOALBUMINAEMIA [None]
  - OEDEMA PERIPHERAL [None]
  - PREGNANCY [None]
  - PROTEIN URINE PRESENT [None]
